FAERS Safety Report 24718489 (Version 1)
Quarter: 2024Q4

REPORT INFORMATION
  Report Type: Spontaneous
  Country: US (occurrence: US)
  Receive Date: 20241210
  Receipt Date: 20241210
  Transmission Date: 20250115
  Serious: No
  Sender: SANOFI AVENTIS
  Company Number: US-SANOFI-02326207

PATIENT
  Age: 74 Year
  Sex: Female

DRUGS (1)
  1. TOUJEO MAX [Suspect]
     Active Substance: INSULIN GLARGINE
     Indication: Type 2 diabetes mellitus
     Dosage: 60 IU, QD

REACTIONS (6)
  - Headache [Unknown]
  - Expired product administered [Unknown]
  - Blood glucose fluctuation [Unknown]
  - Abdominal pain upper [Unknown]
  - Drug ineffective [Unknown]
  - Intentional product misuse [Unknown]
